FAERS Safety Report 8769354 (Version 1)
Quarter: 2012Q4

REPORT INFORMATION
  Report Type: 
  Country: US (occurrence: US)
  Receive Date: 20120904
  Receipt Date: 20120904
  Transmission Date: 20130627
  Serious: Yes (Other)
  Sender: FDA-Public Use
  Company Number: US-PFIZER INC-2012212601

PATIENT
  Age: 46 Year
  Sex: Female

DRUGS (3)
  1. OXALIPLATIN [Suspect]
     Indication: COLON CANCER
     Dosage: Cyclic
  2. 5-FU [Concomitant]
     Indication: COLON CANCER
     Dosage: Cyclic
  3. LEUCOVORIN [Concomitant]
     Indication: COLON CANCER
     Dosage: Cyclic

REACTIONS (2)
  - Hepatocellular injury [Not Recovered/Not Resolved]
  - Ototoxicity [Not Recovered/Not Resolved]
